FAERS Safety Report 9133492 (Version 1)
Quarter: 2013Q1

REPORT INFORMATION
  Report Type: Spontaneous
  Country: US (occurrence: US)
  Receive Date: 20130124
  Receipt Date: 20130124
  Transmission Date: 20140127
  Serious: Yes (Other)
  Sender: FDA-Public Use
  Company Number: US-BRACCO-007173

PATIENT
  Age: 64 Year
  Sex: Female
  Weight: 63 kg

DRUGS (2)
  1. MULTIHANCE [Suspect]
     Indication: ULTRASOUND SCAN ABNORMAL
     Route: 042
     Dates: start: 20111121, end: 20111121
  2. MULTIHANCE [Suspect]
     Indication: NUCLEAR MAGNETIC RESONANCE IMAGING
     Route: 042
     Dates: start: 20111121, end: 20111121

REACTIONS (7)
  - Off label use [Recovered/Resolved]
  - Unresponsive to stimuli [Recovered/Resolved]
  - Oxygen saturation decreased [Recovered/Resolved]
  - Dyspnoea [Recovered/Resolved]
  - Presyncope [Recovered/Resolved]
  - Eye movement disorder [Recovered/Resolved]
  - Heart rate increased [Recovered/Resolved]
